FAERS Safety Report 7628658-4 (Version None)
Quarter: 2011Q3

REPORT INFORMATION
  Report Type: 
  Country: None (occurrence: None)
  Receive Date: 20110722
  Receipt Date: 20110714
  Transmission Date: 20111222
  Serious: Yes (Hospitalization)
  Sender: FDA-Public Use
  Company Number: US-NOVOPROD-331870

PATIENT
  Sex: Male
  Weight: 51.701 kg

DRUGS (1)
  1. NORDITROPIN FLEXPRO [Suspect]
     Indication: GROWTH HORMONE DEFICIENCY
     Dosage: 2.0 MG, QD
     Dates: start: 20110701, end: 20110707

REACTIONS (1)
  - BLOOD SODIUM INCREASED [None]
